FAERS Safety Report 11826616 (Version 1)
Quarter: 2015Q4

REPORT INFORMATION
  Report Type: Spontaneous
  Country: CA (occurrence: CA)
  Receive Date: 20151211
  Receipt Date: 20151211
  Transmission Date: 20160305
  Serious: Yes (Life-Threatening, Hospitalization, Disabling)
  Sender: FDA-Public Use
  Company Number: CA-TEVA-617209ACC

PATIENT
  Age: 13 Day
  Sex: Male
  Weight: 2 kg

DRUGS (3)
  1. ABILIFY [Concomitant]
     Active Substance: ARIPIPRAZOLE
  2. SERTRALINE [Concomitant]
     Active Substance: SERTRALINE HYDROCHLORIDE
  3. LAMOTRIGINE. [Suspect]
     Active Substance: LAMOTRIGINE
     Indication: BIPOLAR DISORDER
     Route: 048

REACTIONS (7)
  - Fluid intake reduced [Recovered/Resolved]
  - Irritability [Recovered/Resolved]
  - Thrombosis [Recovered/Resolved]
  - Ecchymosis [Recovered/Resolved]
  - Hypovolaemic shock [Recovered/Resolved]
  - Exposure during breast feeding [Recovered/Resolved]
  - Somnolence neonatal [Recovered/Resolved]
